FAERS Safety Report 14771611 (Version 3)
Quarter: 2021Q2

REPORT INFORMATION
  Report Type: Spontaneous
  Country: US (occurrence: US)
  Receive Date: 20180417
  Receipt Date: 20210413
  Transmission Date: 20210716
  Serious: No
  Sender: FDA-Public Use
  Company Number: US-ALLERGAN-1724787US

PATIENT
  Sex: Female

DRUGS (3)
  1. VIROPTIC [Concomitant]
     Active Substance: TRIFLURIDINE
     Route: 047
  2. LUMIGAN [Suspect]
     Active Substance: BIMATOPROST
     Indication: GLAUCOMA
     Dosage: UNK, QD
     Route: 065
  3. LATISSE [Concomitant]
     Active Substance: BIMATOPROST
     Indication: GLAUCOMA
     Route: 047

REACTIONS (4)
  - Drug ineffective [Unknown]
  - Intraocular pressure increased [Unknown]
  - Mental disorder [Not Recovered/Not Resolved]
  - Eye movement disorder [Unknown]
